FAERS Safety Report 6788245-7 (Version None)
Quarter: 2010Q2

REPORT INFORMATION
  Report Type: 
  Country: None (occurrence: None)
  Receive Date: 20100623
  Receipt Date: 20080202
  Transmission Date: 20101027
  Serious: No
  Sender: FDA-Public Use
  Company Number: US-PFIZER INC-2008011660

PATIENT
  Sex: Female
  Weight: 52.272 kg

DRUGS (3)
  1. XALATAN [Suspect]
     Indication: HYPERSENSITIVITY
  2. XALATAN [Suspect]
     Indication: INTRAOCULAR PRESSURE INCREASED
  3. DRUG, UNSPECIFIED [Concomitant]

REACTIONS (2)
  - EYE DISORDER [None]
  - HYPERSENSITIVITY [None]
